FAERS Safety Report 19426086 (Version 1)
Quarter: 2021Q2

REPORT INFORMATION
  Report Type: Spontaneous
  Country: US (occurrence: US)
  Receive Date: 20210617
  Receipt Date: 20210617
  Transmission Date: 20210717
  Serious: No
  Sender: FDA-Public Use
  Company Number: US-IPSEN BIOPHARMACEUTICALS, INC.-2021-14622

PATIENT
  Age: 60 Year
  Sex: Male
  Weight: 73.02 kg

DRUGS (9)
  1. SOMATULINE DEPOT [Suspect]
     Active Substance: LANREOTIDE ACETATE
     Indication: CARCINOID TUMOUR
     Dosage: 120MG, EVERY 28 DAYS.
     Route: 058
  2. SIMVASTATIN. [Concomitant]
     Active Substance: SIMVASTATIN
  3. CREON [Concomitant]
     Active Substance: PANCRELIPASE AMYLASE\PANCRELIPASE LIPASE\PANCRELIPASE PROTEASE
  4. NOVOLOG [Concomitant]
     Active Substance: INSULIN ASPART
  5. TRESIBA [Concomitant]
     Active Substance: INSULIN DEGLUDEC
  6. HYDRALAZINE [Concomitant]
     Active Substance: HYDRALAZINE HYDROCHLORIDE
  7. ASPRIN [Concomitant]
     Active Substance: ASPIRIN
  8. LOSARTAN POTASSIUM. [Concomitant]
     Active Substance: LOSARTAN POTASSIUM
     Dosage: 50MG
  9. CITALOPRAM [Concomitant]
     Active Substance: CITALOPRAM HYDROBROMIDE

REACTIONS (5)
  - Arthralgia [Not Recovered/Not Resolved]
  - Pain in extremity [Unknown]
  - Breath sounds abnormal [Unknown]
  - Injection site pain [Unknown]
  - Nausea [Unknown]

NARRATIVE: CASE EVENT DATE: 20210609
